FAERS Safety Report 6715923-8 (Version None)
Quarter: 2010Q2

REPORT INFORMATION
  Report Type: 
  Country: None (occurrence: None)
  Receive Date: 20100507
  Receipt Date: 20100504
  Transmission Date: 20101027
  Serious: Yes (Life-Threatening, Hospitalization)
  Sender: FDA-Public Use
  Company Number: PHHY2010FR27807

PATIENT
  Age: 81 Year
  Sex: Male

DRUGS (2)
  1. RASILEZ [Suspect]
     Dosage: 300 MG, UNK
     Route: 048
     Dates: start: 20091210, end: 20091211
  2. ISOPTIN [Concomitant]

REACTIONS (5)
  - CONVULSION [None]
  - EPILEPSY [None]
  - HYPONATRAEMIA [None]
  - OEDEMA [None]
  - VOMITING [None]
